FAERS Safety Report 14713792 (Version 1)
Quarter: 2018Q1

REPORT INFORMATION
  Report Type: Spontaneous
  Country: US (occurrence: US)
  Receive Date: 20180330
  Receipt Date: 20180330
  Transmission Date: 20180509
  Serious: No
  Sender: FDA-Public Use
  Company Number: None

PATIENT
  Age: 8 Year
  Sex: Female

DRUGS (7)
  1. CREON [Concomitant]
     Active Substance: PANCRELIPASE AMYLASE\PANCRELIPASE LIPASE\PANCRELIPASE PROTEASE
  2. ORKAMBI [Suspect]
     Active Substance: IVACAFTOR\LUMACAFTOR
     Indication: CYSTIC FIBROSIS
     Route: 048
     Dates: start: 20170505, end: 201803
  3. PULMOZYME [Concomitant]
     Active Substance: DORNASE ALFA
  4. COMPLETE FORM D3000 [Concomitant]
  5. TOBRAMYCIN  300MG/5ML [Suspect]
     Active Substance: TOBRAMYCIN
     Indication: CYSTIC FIBROSIS
     Route: 055
     Dates: start: 20171113, end: 201801
  6. CAYSTON [Concomitant]
     Active Substance: AZTREONAM
  7. VLOKACE [Concomitant]

REACTIONS (1)
  - Hepatic enzyme increased [None]
